FAERS Safety Report 7459354-4 (Version None)
Quarter: 2011Q2

REPORT INFORMATION
  Report Type: 
  Country: None (occurrence: None)
  Receive Date: 20110505
  Receipt Date: 20110429
  Transmission Date: 20111010
  Serious: Yes (Hospitalization)
  Sender: FDA-Public Use
  Company Number: FR-ABBOTT-11P-056-0722549-00

PATIENT
  Sex: Female

DRUGS (5)
  1. ANSATIPINE [Interacting]
     Indication: MYCOBACTERIAL INFECTION
     Route: 048
     Dates: start: 20110406, end: 20110416
  2. ZECLAR [Suspect]
     Indication: MYCOBACTERIAL INFECTION
     Route: 048
     Dates: start: 20110406
  3. MEROPENEM [Concomitant]
     Indication: MYCOBACTERIAL INFECTION
     Route: 042
     Dates: start: 20110406
  4. AMIKLIN [Concomitant]
     Indication: MYCOBACTERIAL INFECTION
     Route: 042
  5. CIPROFLOXACIN [Concomitant]
     Indication: MYCOBACTERIAL INFECTION

REACTIONS (7)
  - LEUKOPENIA [None]
  - PYREXIA [None]
  - ASTHENIA [None]
  - NEUTROPENIA [None]
  - DRUG INTERACTION [None]
  - THROMBOCYTOPENIA [None]
  - ERYTHEMA [None]
